FAERS Safety Report 5403044-6 (Version None)
Quarter: 2007Q3

REPORT INFORMATION
  Report Type: 
  Country: None (occurrence: None)
  Receive Date: 20070801
  Receipt Date: 20070719
  Transmission Date: 20080115
  Serious: Yes (Other)
  Sender: FDA-Public Use
  Company Number: JP-ELI_LILLY_AND_COMPANY-JP200707006069

PATIENT
  Age: 53 Year
  Sex: Male
  Weight: 69.2 kg

DRUGS (7)
  1. SOMATROPIN [Suspect]
     Dosage: 0.2 MG, DAILY (1/D)
     Route: 058
     Dates: start: 20060927, end: 20070101
  2. SOMATROPIN [Suspect]
     Route: 058
     Dates: start: 20070101
  3. DECADRON [Concomitant]
     Indication: ADRENAL INSUFFICIENCY
     Dosage: 0.5 MG, DAILY (1/D)
     Route: 048
     Dates: start: 20051128
  4. OLMESARTAN MEDOXOMIL [Concomitant]
     Indication: HYPERTENSION
     Dosage: 20 MG, DAILY (1/D)
     Route: 048
     Dates: start: 20061205
  5. ARTIST [Concomitant]
     Indication: HYPERTENSION
     Dosage: 5 MG, DAILY (1/D)
     Route: 048
     Dates: start: 20060508
  6. COVERSYL /00790702/ [Concomitant]
     Indication: HYPERTENSION
     Dosage: 2 MG, DAILY (1/D)
     Route: 048
     Dates: start: 20061205
  7. CRESTOR /01588602/ [Concomitant]
     Indication: HYPERLIPIDAEMIA
     Dosage: 5 MG, DAILY (1/D)
     Route: 048
     Dates: start: 20060406

REACTIONS (1)
  - TYPE 2 DIABETES MELLITUS [None]
